FAERS Safety Report 5442101-5 (Version None)
Quarter: 2007Q3

REPORT INFORMATION
  Report Type: 
  Country: None (occurrence: None)
  Receive Date: 20070904
  Receipt Date: 20070821
  Transmission Date: 20080115
  Serious: Yes (Hospitalization)
  Sender: FDA-Public Use
  Company Number: FR-ROCHE-512621

PATIENT
  Age: 43 Year
  Sex: Male

DRUGS (6)
  1. COPEGUS [Suspect]
     Indication: HEPATITIS C
     Route: 065
     Dates: start: 20070307, end: 20070321
  2. COPEGUS [Suspect]
     Dosage: PROGRESSIVE REINTRODUCTION.
     Route: 065
     Dates: start: 20070416
  3. LYRICA [Suspect]
     Indication: NEUROPATHY PERIPHERAL
     Route: 065
     Dates: start: 20070306, end: 20070321
  4. VIRAFERONPEG [Suspect]
     Indication: HEPATITIS C
     Dosage: FORM: INJECTABLE SOLUTION.
     Route: 058
     Dates: start: 20070307, end: 20070321
  5. VIRAFERONPEG [Suspect]
     Dosage: REINTRODUCTION AT 50 MCG; AS OF 08 MAY 2007 DOSAGE AT 80 MCG.
     Route: 058
     Dates: start: 20070423
  6. LAROXYL [Concomitant]

REACTIONS (2)
  - PRURITUS [None]
  - RASH MACULO-PAPULAR [None]
